FAERS Safety Report 13010293 (Version 4)
Quarter: 2016Q4

REPORT INFORMATION
  Report Type: Spontaneous
  Country: KR (occurrence: KR)
  Receive Date: 20161208
  Receipt Date: 20161222
  Transmission Date: 20170207
  Serious: Yes (Hospitalization, Other)
  Sender: FDA-Public Use
  Company Number: KR-009507513-1612KOR003307

PATIENT
  Age: 55 Year
  Sex: Male
  Weight: 73.2 kg

DRUGS (18)
  1. DEXAMETHASONE SODIUM PHOSPHATE. [Concomitant]
     Active Substance: DEXAMETHASONE SODIUM PHOSPHATE
     Indication: PROPHYLAXIS AGAINST GASTROINTESTINAL ULCER
     Dosage: 12 MG, ONCE. STRENGTH: 5MG/ML
     Route: 042
     Dates: start: 20160920, end: 20160920
  2. DILATREND [Concomitant]
     Active Substance: CARVEDILOL
     Indication: HYPERTENSION
     Dosage: 25 MG, DAILY
     Route: 048
     Dates: start: 20160823, end: 20160921
  3. EMEND (FOSAPREPITANT DIMEGLUMINE) [Suspect]
     Active Substance: FOSAPREPITANT DIMEGLUMINE
     Dosage: 150 MG, ONCE
     Route: 042
     Dates: start: 20160802, end: 20160802
  4. CURAN [Concomitant]
     Active Substance: RANITIDINE HYDROCHLORIDE
     Indication: PROPHYLAXIS AGAINST GASTROINTESTINAL ULCER
     Dosage: 50 MG, ONCE. STRENGTH: 50MG/2ML
     Route: 042
     Dates: start: 20160920, end: 20160920
  5. LYRICA [Concomitant]
     Active Substance: PREGABALIN
     Indication: NEUROPATHY PERIPHERAL
     Dosage: 1 CAPSULE, TWICE A DAY
     Route: 048
     Dates: start: 20160829, end: 20161005
  6. SANCUSO [Concomitant]
     Active Substance: GRANISETRON
     Indication: PROPHYLAXIS OF NAUSEA AND VOMITING
     Dosage: 1 EA, ONCE A DAY. ROUTE: PATCH. STRENGTH 80.2X66.6MM3
     Dates: start: 20160919, end: 20160925
  7. ANZATAX (PACLITAXEL) [Concomitant]
     Indication: GASTRIC CANCER
     Dosage: 322 MG, ONCE. CYCLE 3
     Route: 042
     Dates: start: 20160920, end: 20160920
  8. DEXAMETHASONE. [Concomitant]
     Active Substance: DEXAMETHASONE
     Indication: PROPHYLAXIS
     Dosage: 5 MG, ONCE
     Route: 042
     Dates: start: 20160922, end: 20160923
  9. EMEND (FOSAPREPITANT DIMEGLUMINE) [Suspect]
     Active Substance: FOSAPREPITANT DIMEGLUMINE
     Dosage: 150 MG, ONCE
     Route: 042
     Dates: start: 20160823, end: 20160823
  10. CISPLAN [Concomitant]
     Active Substance: CISPLATIN
     Indication: GASTRIC CANCER
     Dosage: 110.4 MG, ONCE. STRENGTH: 50MG/100ML. CYCLE 3
     Route: 042
     Dates: start: 20160920, end: 20160920
  11. PENNEL [Concomitant]
     Indication: LIVER FUNCTION TEST INCREASED
     Dosage: 1 CAPSULE, THREE TIMES PER DAY
     Route: 048
     Dates: start: 20160801, end: 20161005
  12. CENTRUM (MINERALS (UNSPECIFIED) (+) VITAMINS (UNSPECIFIED)) [Concomitant]
     Indication: PROPHYLAXIS
     Dosage: 1 TABLET, DAILY
     Route: 048
     Dates: start: 20160426, end: 20161003
  13. CHLORPHENIRAMINE MALEATE. [Concomitant]
     Active Substance: CHLORPHENIRAMINE MALEATE
     Indication: PROPHYLAXIS
     Dosage: 4 MG, ONCE
     Route: 042
     Dates: start: 20160920, end: 20160920
  14. MORPHINE SULFATE. [Concomitant]
     Active Substance: MORPHINE SULFATE
     Indication: CANCER PAIN
     Dosage: 3 MG, DAILY
     Route: 042
     Dates: start: 20160921, end: 20160923
  15. DONG A GASTER [Concomitant]
     Indication: PROPHYLAXIS AGAINST GASTROINTESTINAL ULCER
     Dosage: 20 MG, TWICE A DAY
     Route: 042
     Dates: start: 20160921, end: 20160928
  16. EMEND (FOSAPREPITANT DIMEGLUMINE) [Suspect]
     Active Substance: FOSAPREPITANT DIMEGLUMINE
     Indication: PROPHYLAXIS OF NAUSEA AND VOMITING
     Dosage: 150 MG, ONCE
     Route: 042
     Dates: start: 20160920, end: 20160920
  17. MATRIFEN [Concomitant]
     Active Substance: FENTANYL
     Indication: CANCER PAIN
     Dosage: 25 MCG, DAILY. STRENGTH: 25MCG/H-8.4CM. ROUTE: PATCH
     Route: 059
     Dates: start: 20160328
  18. FEROBA [Concomitant]
     Active Substance: FERROUS SULFATE\PROTEASE
     Indication: ANAEMIA
     Dosage: 1 TABLET, TWICE A DAY
     Route: 048
     Dates: start: 20160810, end: 20161006

REACTIONS (1)
  - Tumour haemorrhage [Recovered/Resolved]

NARRATIVE: CASE EVENT DATE: 20160922
